FAERS Safety Report 9529600 (Version 1)
Quarter: 2013Q3

REPORT INFORMATION
  Report Type: Report from Study
  Country: US (occurrence: US)
  Receive Date: 20130917
  Receipt Date: 20130917
  Transmission Date: 20140515
  Serious: Yes (Other)
  Sender: FDA-Public Use
  Company Number: PHEH2012US026054

PATIENT
  Age: 69 Year
  Sex: Female

DRUGS (13)
  1. TASIGNA [Suspect]
     Indication: CHRONIC MYELOID LEUKAEMIA
     Dosage: 200 MG, BID
     Route: 048
     Dates: start: 201111
  2. ZANAFLEX [Concomitant]
  3. SKELAXIN [Concomitant]
  4. QVAR [Concomitant]
  5. NASONEX [Concomitant]
  6. PREDNISONE [Concomitant]
  7. AMLODIPINE [Concomitant]
  8. LOVAZA [Concomitant]
  9. ACTONEL [Concomitant]
  10. PRINIVIL [Concomitant]
  11. CYCLOBENZAPRINE [Concomitant]
  12. COREG [Concomitant]
  13. CALCIUM [Concomitant]

REACTIONS (4)
  - Spinal column stenosis [Not Recovered/Not Resolved]
  - Back pain [Not Recovered/Not Resolved]
  - Psoriasis [Not Recovered/Not Resolved]
  - Rash [Not Recovered/Not Resolved]
